FAERS Safety Report 25964838 (Version 1)
Quarter: 2025Q4

REPORT INFORMATION
  Report Type: Spontaneous
  Country: CN (occurrence: CN)
  Receive Date: 20251027
  Receipt Date: 20251027
  Transmission Date: 20260118
  Serious: Yes (Hospitalization, Other)
  Sender: PFIZER
  Company Number: CN-PFIZER INC-PV202500124770

PATIENT
  Age: 51 Year
  Sex: Male
  Weight: 59 kg

DRUGS (1)
  1. LORBRENA [Suspect]
     Active Substance: LORLATINIB
     Indication: Chemotherapy
     Dosage: 100 MG, 1X/DAY
     Route: 048
     Dates: start: 20250904, end: 20251016

REACTIONS (6)
  - Cardiac failure [Recovering/Resolving]
  - Deep vein thrombosis [Unknown]
  - Lung neoplasm malignant [Unknown]
  - Metastases to liver [Unknown]
  - Metastases to spleen [Unknown]
  - Malignant neoplasm progression [Unknown]

NARRATIVE: CASE EVENT DATE: 20251013
